FAERS Safety Report 24608987 (Version 3)
Quarter: 2025Q1

REPORT INFORMATION
  Report Type: Spontaneous
  Country: US (occurrence: US)
  Receive Date: 20241112
  Receipt Date: 20250113
  Transmission Date: 20250409
  Serious: No
  Sender: PFIZER
  Company Number: US-PFIZER INC-202400297417

PATIENT
  Age: 69 Year
  Sex: Female

DRUGS (4)
  1. IBRANCE [Suspect]
     Active Substance: PALBOCICLIB
     Indication: Breast cancer female
     Route: 048
     Dates: start: 20200210
  2. IBRANCE [Suspect]
     Active Substance: PALBOCICLIB
     Route: 048
     Dates: start: 20241107
  3. OXYCODONE [Concomitant]
     Active Substance: OXYCODONE
  4. TIMOLOL [Concomitant]
     Active Substance: TIMOLOL

REACTIONS (7)
  - White blood cell count decreased [Recovering/Resolving]
  - Red blood cell count decreased [Recovering/Resolving]
  - Haematocrit decreased [Recovering/Resolving]
  - Mean cell volume increased [Recovering/Resolving]
  - Mean cell haemoglobin concentration increased [Recovering/Resolving]
  - Lymphocyte count decreased [Recovering/Resolving]
  - Mean cell haemoglobin increased [Recovering/Resolving]

NARRATIVE: CASE EVENT DATE: 20241021
